FAERS Safety Report 15290439 (Version 1)
Quarter: 2018Q3

REPORT INFORMATION
  Report Type: Spontaneous
  Country: US (occurrence: US)
  Receive Date: 20180804
  Receipt Date: 20180804
  Transmission Date: 20181010
  Serious: Yes (Hospitalization)
  Sender: FDA-Public Use
  Company Number: None

PATIENT
  Age: 71 Year
  Sex: Female
  Weight: 60.75 kg

DRUGS (12)
  1. PANTOPRAZOLE [Concomitant]
     Active Substance: PANTOPRAZOLE
  2. B12 SUPPLEMENT [Concomitant]
  3. ATORVASTATIN [Concomitant]
     Active Substance: ATORVASTATIN
  4. PROPRANOLOL [Concomitant]
     Active Substance: PROPRANOLOL HYDROCHLORIDE
  5. CICLOPIROX. [Concomitant]
     Active Substance: CICLOPIROX
  6. RITARY [Concomitant]
  7. CALCIUM [Concomitant]
     Active Substance: CALCIUM
  8. BOTOX [Suspect]
     Active Substance: ONABOTULINUMTOXINA
     Indication: TORTICOLLIS
     Route: 008
     Dates: start: 20171116, end: 20180529
  9. MULTI?VITAMIN [Concomitant]
     Active Substance: .ALPHA.-TOCOPHEROL ACETATE, DL-\ASCORBIC ACID\CYANOCOBALAMIN\FLUORIDE ION\FOLIC ACID\NIACIN\PYRIDOXINE\RIBOFLAVIN\THIAMINE\VITAMIN A\VITAMIN D
  10. COQ10 [Concomitant]
     Active Substance: UBIDECARENONE
  11. NEUPORO PATCH [Concomitant]
  12. RASAGILINE. [Concomitant]
     Active Substance: RASAGILINE

REACTIONS (5)
  - Haemorrhagic anaemia [None]
  - Gastrointestinal haemorrhage [None]
  - Chest pain [None]
  - Internal haemorrhage [None]
  - Dyspnoea [None]

NARRATIVE: CASE EVENT DATE: 20180614
